FAERS Safety Report 6189112-2 (Version None)
Quarter: 2009Q2

REPORT INFORMATION
  Report Type: 
  Country: None (occurrence: None)
  Receive Date: 20090512
  Receipt Date: 20090427
  Transmission Date: 20091009
  Serious: Yes (Death)
  Sender: FDA-Public Use
  Company Number: 2009001272

PATIENT
  Age: 72 Year
  Sex: Male
  Weight: 87 kg

DRUGS (8)
  1. ERLOTINIB         (ERLOTINIB) (TABLET) [Suspect]
     Indication: NON-SMALL CELL LUNG CANCER
     Dosage: (150 MG, QD), ORAL
     Route: 048
     Dates: start: 20090317, end: 20090401
  2. CP-751-871 [Suspect]
     Dosage: (D1+2, Q3W)
     Dates: start: 20090317
  3. DIAMICRON (GLICLAZIDE) [Concomitant]
  4. VIBRAMYCIN [Concomitant]
  5. MICONAZOLE NITRATE [Concomitant]
  6. KAYEXALATE [Concomitant]
  7. SOLU-MEDROL [Concomitant]
  8. OMEPRAZOLE [Concomitant]

REACTIONS (6)
  - DEHYDRATION [None]
  - DIARRHOEA [None]
  - PULMONARY EMBOLISM [None]
  - PULMONARY HAEMORRHAGE [None]
  - RASH [None]
  - RENAL FAILURE ACUTE [None]
